FAERS Safety Report 11840573 (Version 1)
Quarter: 2015Q4

REPORT INFORMATION
  Report Type: Spontaneous
  Country: US (occurrence: US)
  Receive Date: 20151216
  Receipt Date: 20151216
  Transmission Date: 20160305
  Serious: No
  Sender: FDA-Public Use
  Company Number: US-009507513-2005-10-1333

PATIENT
  Age: 24 Year
  Sex: Female

DRUGS (3)
  1. REBETOL [Suspect]
     Active Substance: RIBAVIRIN
     Indication: HEPATITIS C
     Dosage: DOSE: 800 MG QD, DURATION: 6 MONTH(S)
     Route: 048
     Dates: start: 20040201, end: 200408
  2. MINERALS (UNSPECIFIED) (+) VITAMINS (UNSPECIFIED) [Concomitant]
     Dosage: DOSE: 1 QD
     Dates: start: 20041101
  3. PEGINTRON [Suspect]
     Active Substance: PEGINTERFERON ALFA-2B
     Indication: HEPATITIS C
     Dosage: DOSE: UNKNOWN, DURATION: 6 MONTH(S)
     Dates: start: 20040201, end: 200408

REACTIONS (2)
  - Exposure during pregnancy [Unknown]
  - No adverse event [Unknown]
